FAERS Safety Report 20216730 (Version 1)
Quarter: 2021Q4

REPORT INFORMATION
  Report Type: Report from Study
  Country: US (occurrence: US)
  Receive Date: 20211222
  Receipt Date: 20211222
  Transmission Date: 20220303
  Serious: Yes (Hospitalization)
  Sender: FDA-Public Use
  Company Number: US-VERTEX PHARMACEUTICALS-2021-019913

PATIENT
  Age: 70 Year
  Sex: Male

DRUGS (11)
  1. TRIKAFTA [Suspect]
     Active Substance: ELEXACAFTOR\IVACAFTOR\TEZACAFTOR
     Indication: Cystic fibrosis
     Dosage: 2 TABS AM, 1  TAB PM
     Route: 048
     Dates: start: 20200702
  2. PULMOZYME [Concomitant]
     Active Substance: DORNASE ALFA
     Dosage: SOL 30X 2.5ML
  3. ATORVASTATIN [Concomitant]
     Active Substance: ATORVASTATIN
     Dosage: 40 MG, TAB
  4. SYMBICORT [Concomitant]
     Active Substance: BUDESONIDE\FORMOTEROL FUMARATE DIHYDRATE
     Dosage: 160/4,5 MCG (60)
     Route: 048
  5. VITAMIN D3 [Concomitant]
     Active Substance: CHOLECALCIFEROL
     Dosage: 50000 IU INTERNATIONAL UNIT(S)
  6. ALBUTEROL [Concomitant]
     Active Substance: ALBUTEROL
     Dosage: (2.5 MG/3ML) 30X3ML
  7. NOVOLOG [Concomitant]
     Active Substance: INSULIN ASPART
     Dosage: 3 ML
  8. OLANZAPINE [Concomitant]
     Active Substance: OLANZAPINE
     Dosage: 5MG, TAB
  9. OMEPRAZOLE [Concomitant]
     Active Substance: OMEPRAZOLE
     Dosage: UNK
  10. OXYBUTYNIN [Concomitant]
     Active Substance: OXYBUTYNIN
     Dosage: 5MG, TAB
  11. QUETIAPINE [Concomitant]
     Active Substance: QUETIAPINE
     Dosage: 50MG TAB

REACTIONS (1)
  - Cystic fibrosis respiratory infection suppression [Unknown]

NARRATIVE: CASE EVENT DATE: 20211129
